FAERS Safety Report 6466051-0 (Version None)
Quarter: 2009Q4

REPORT INFORMATION
  Report Type: 
  Country: None (occurrence: None)
  Receive Date: 20091202
  Receipt Date: 20091123
  Transmission Date: 20100525
  Serious: Yes (Other)
  Sender: FDA-Public Use
  Company Number: NL-JNJFOC-20091107643

PATIENT
  Age: 15 Year
  Sex: Male

DRUGS (1)
  1. ITRACONAZOLE [Suspect]
     Indication: TINEA PEDIS
     Route: 065

REACTIONS (2)
  - INCORRECT DOSE ADMINISTERED [None]
  - PANCREATITIS [None]
